FAERS Safety Report 17954058 (Version 2)
Quarter: 2020Q3

REPORT INFORMATION
  Report Type: Report from Study
  Country: US (occurrence: US)
  Receive Date: 20200629
  Receipt Date: 20200930
  Transmission Date: 20201103
  Serious: Yes (Hospitalization, Other)
  Sender: FDA-Public Use
  Company Number: US-ROCHE-2577929

PATIENT
  Age: 59 Year
  Sex: Female
  Weight: 72.4 kg

DRUGS (2)
  1. OBINUTUZUMAB. [Suspect]
     Active Substance: OBINUTUZUMAB
     Indication: B-CELL LYMPHOMA
     Dosage: ON DAY 1?LAST DOSE ADMINISTERED PRIOR TO ONSET OF ADVERSE EVENT ON 09/MAR/2020
     Route: 042
     Dates: start: 20190711
  2. TGR 1202 [Suspect]
     Active Substance: UMBRALISIB
     Indication: B-CELL LYMPHOMA
     Dosage: LAST DOSE GIVEN BEFORE ONSET OF ADVERSE EVENT: ON 19/MAR/2020?PATIENT MISSED DOSE ON 20/MAR/2020 AND
     Route: 048
     Dates: start: 20190711

REACTIONS (4)
  - Hypoxia [Recovered/Resolved]
  - Hypomagnesaemia [Recovered/Resolved]
  - Hypokalaemia [Recovered/Resolved]
  - Pneumonia [Recovered/Resolved]

NARRATIVE: CASE EVENT DATE: 20200319
